FAERS Safety Report 10699554 (Version 1)
Quarter: 2015Q1

REPORT INFORMATION
  Report Type: Spontaneous
  Country: US (occurrence: US)
  Receive Date: 20150109
  Receipt Date: 20150109
  Transmission Date: 20150721
  Serious: No
  Sender: FDA-Public Use
  Company Number: US-OPTIMER-20140139

PATIENT
  Age: 40 Year
  Sex: Female
  Weight: 100 kg

DRUGS (3)
  1. TRAMADOL [Concomitant]
     Active Substance: TRAMADOL
     Indication: ABDOMINAL PAIN
     Dosage: 1 TABLET Q 4 HOURS, PRN
     Route: 065
  2. DIFICID [Suspect]
     Active Substance: FIDAXOMICIN
     Indication: CLOSTRIDIUM DIFFICILE COLITIS
     Dosage: 200 MG, BID
     Route: 048
     Dates: start: 20140529, end: 20140607
  3. MULTIVITAMIN [Concomitant]
     Active Substance: VITAMINS
     Dosage: UNK
     Route: 065

REACTIONS (13)
  - Paraesthesia [Recovered/Resolved]
  - Palpitations [Recovered/Resolved]
  - Hypersensitivity [Recovered/Resolved]
  - Dizziness [Recovered/Resolved]
  - Nausea [Recovered/Resolved]
  - Vomiting [Recovered/Resolved]
  - Hyperhidrosis [Recovered/Resolved]
  - Tremor [Recovered/Resolved]
  - Anxiety [Recovered/Resolved]
  - Chest pain [Recovered/Resolved]
  - Panic reaction [Recovered/Resolved]
  - Chills [Recovered/Resolved]
  - Rebound tachycardia [Recovered/Resolved]

NARRATIVE: CASE EVENT DATE: 20140531
